FAERS Safety Report 8314046-4 (Version None)
Quarter: 2012Q2

REPORT INFORMATION
  Report Type: 
  Country: None (occurrence: None)
  Receive Date: 20120426
  Receipt Date: 20120423
  Transmission Date: 20120825
  Serious: No
  Sender: FDA-Public Use
  Company Number: US-TEVA-332989USA

PATIENT
  Sex: Female

DRUGS (9)
  1. PROAIR HFA [Suspect]
     Route: 055
  2. ZANAFLEX [Concomitant]
  3. OXYCODONE HCL [Concomitant]
  4. VOLTAREN [Concomitant]
  5. DOXEPIN [Concomitant]
  6. VITAMIN D2 [Concomitant]
  7. PREDNISONE TAB [Concomitant]
  8. SPIRIVA [Concomitant]
  9. METAXALONE [Concomitant]

REACTIONS (3)
  - DYSGEUSIA [None]
  - OROPHARYNGEAL BLISTERING [None]
  - THROAT IRRITATION [None]
